FAERS Safety Report 5755373-4 (Version None)
Quarter: 2008Q2

REPORT INFORMATION
  Report Type: 
  Country: None (occurrence: None)
  Receive Date: 20080529
  Receipt Date: 20080529
  Transmission Date: 20081010
  Serious: Yes (Hospitalization)
  Sender: FDA-Public Use
  Company Number: None

PATIENT
  Sex: Male
  Weight: 68.0396 kg

DRUGS (1)
  1. CETIRIZINE HCL [Suspect]
     Indication: RHINITIS SEASONAL
     Dosage: 10 MG QD PO
     Route: 048
     Dates: start: 20080420, end: 20080515

REACTIONS (2)
  - CHEST PAIN [None]
  - PALPITATIONS [None]
